FAERS Safety Report 24244519 (Version 1)
Quarter: 2024Q3

REPORT INFORMATION
  Report Type: Spontaneous
  Country: US (occurrence: US)
  Receive Date: 20240823
  Receipt Date: 20240823
  Transmission Date: 20241017
  Serious: No
  Sender: NOVARTIS
  Company Number: US-002147023-NVSC2024US170252

PATIENT
  Age: 58 Year
  Sex: Female
  Weight: 63 kg

DRUGS (1)
  1. FABHALTA [Suspect]
     Active Substance: IPTACOPAN HYDROCHLORIDE
     Indication: Paroxysmal nocturnal haemoglobinuria
     Dosage: 200 MG, BID
     Route: 048
     Dates: start: 202405

REACTIONS (2)
  - Hypertension [Recovering/Resolving]
  - Blood cholesterol increased [Recovering/Resolving]

NARRATIVE: CASE EVENT DATE: 20240814
